FAERS Safety Report 17370353 (Version 1)
Quarter: 2020Q1

REPORT INFORMATION
  Report Type: Spontaneous
  Country: US (occurrence: US)
  Receive Date: 20200205
  Receipt Date: 20200205
  Transmission Date: 20200409
  Serious: No
  Sender: FDA-Public Use
  Company Number: US-AMGEN-USASP2020017306

PATIENT
  Age: 72 Year
  Sex: Female

DRUGS (8)
  1. INDAPAMIDE. [Concomitant]
     Active Substance: INDAPAMIDE
  2. SYNTHROID [Concomitant]
     Active Substance: LEVOTHYROXINE SODIUM
     Dosage: 88 MICROGRAM
  3. VERAPAMIL [Concomitant]
     Active Substance: VERAPAMIL HYDROCHLORIDE
     Dosage: 180 MILLIGRAM
  4. TYLENOL [Concomitant]
     Active Substance: ACETAMINOPHEN
  5. CARVEDILOL. [Concomitant]
     Active Substance: CARVEDILOL
     Dosage: 6.25 MILLIGRAM
  6. POTASSIUM CHLORIDE. [Concomitant]
     Active Substance: POTASSIUM CHLORIDE
     Dosage: 20 MILLIEQUIVALENT
  7. REPATHA [Suspect]
     Active Substance: EVOLOCUMAB
     Indication: TYPE IIA HYPERLIPIDAEMIA
     Dosage: 140 MILLIGRAM PER MILLILITRE
     Route: 058
  8. AMOXICILLIN. [Concomitant]
     Active Substance: AMOXICILLIN

REACTIONS (1)
  - Influenza like illness [Unknown]

NARRATIVE: CASE EVENT DATE: 20200123
